FAERS Safety Report 12297991 (Version 1)
Quarter: 2016Q2

REPORT INFORMATION
  Report Type: Report from Study
  Country: BR (occurrence: BR)
  Receive Date: 20160422
  Receipt Date: 20160422
  Transmission Date: 20160815
  Serious: Yes (Other)
  Sender: FDA-Public Use
  Company Number: ALCN2016BR002672

PATIENT
  Sex: Male
  Weight: 80 kg

DRUGS (1)
  1. TRAVATAN Z [Suspect]
     Active Substance: TRAVOPROST
     Indication: GLAUCOMA
     Dosage: 1 GTT, QD
     Route: 047
     Dates: start: 2013, end: 201506

REACTIONS (1)
  - Cataract [Unknown]
